FAERS Safety Report 13377736 (Version 1)
Quarter: 2017Q1

REPORT INFORMATION
  Report Type: Spontaneous
  Country: US (occurrence: US)
  Receive Date: 20170328
  Receipt Date: 20170328
  Transmission Date: 20170429
  Serious: No
  Sender: FDA-Public Use
  Company Number: US-AMNEAL PHARMACEUTICALS-2016AMN00714

PATIENT
  Age: 77 Year
  Sex: Female
  Weight: 71.66 kg

DRUGS (6)
  1. OXYCODONE HYDROCHLORIDE. [Suspect]
     Active Substance: OXYCODONE HYDROCHLORIDE
     Indication: BACK PAIN
  2. ROXICODONE [Concomitant]
     Active Substance: OXYCODONE HYDROCHLORIDE
     Dosage: 5 MG, 3X/DAY FROM MFG. MAYNE OR KVK
     Dates: start: 201607
  3. SYNTHROID [Concomitant]
     Active Substance: LEVOTHYROXINE SODIUM
     Dosage: UNK
  4. VITAMIN D AND B COMPLEX [Concomitant]
  5. LYRICA [Concomitant]
     Active Substance: PREGABALIN
     Dosage: UNK THREE TIMES A WEEK MAYBE
  6. OXYCODONE HYDROCHLORIDE. [Suspect]
     Active Substance: OXYCODONE HYDROCHLORIDE
     Indication: SCIATICA
     Dosage: UNK USED ONLY 2 TABLETS THE SAME DAY FOUR HOURS APART
     Route: 048
     Dates: start: 20161128, end: 20161128

REACTIONS (16)
  - Palpitations [Recovering/Resolving]
  - Headache [Recovering/Resolving]
  - Restless legs syndrome [Recovering/Resolving]
  - Tremor [Recovering/Resolving]
  - Insomnia [Recovering/Resolving]
  - Drug ineffective [Not Recovered/Not Resolved]
  - Anxiety [Unknown]
  - Dysphonia [Recovering/Resolving]
  - Malaise [Recovering/Resolving]
  - Muscle tightness [Recovering/Resolving]
  - Flushing [Recovering/Resolving]
  - Product measured potency issue [Unknown]
  - Product substitution issue [Unknown]
  - Burning sensation [Not Recovered/Not Resolved]
  - Feeling abnormal [Recovering/Resolving]
  - Product formulation issue [Unknown]

NARRATIVE: CASE EVENT DATE: 20161128
